FAERS Safety Report 19061948 (Version 1)
Quarter: 2021Q1

REPORT INFORMATION
  Report Type: Spontaneous
  Country: DE (occurrence: DE)
  Receive Date: 20210325
  Receipt Date: 20210325
  Transmission Date: 20210420
  Serious: Yes (Life-Threatening, Hospitalization, Disabling, Other)
  Sender: FDA-Public Use
  Company Number: DE-SA-2021SA099011

PATIENT
  Age: 37 Year
  Sex: Female
  Weight: 97 kg

DRUGS (2)
  1. ENOXAPARIN SODIUM. [Suspect]
     Active Substance: ENOXAPARIN SODIUM
     Dosage: 2 X 10.000
  2. PLEGRIDY [Suspect]
     Active Substance: PEGINTERFERON BETA-1A
     Indication: MULTIPLE SCLEROSIS
     Dosage: 125 MG
     Route: 058
     Dates: start: 201903, end: 202009

REACTIONS (6)
  - Thrombosis [Unknown]
  - Drug ineffective [Unknown]
  - Thrombosis [Unknown]
  - Aortic thrombosis [Unknown]
  - Renal artery thrombosis [Not Recovered/Not Resolved]
  - Renal infarct [Unknown]

NARRATIVE: CASE EVENT DATE: 2019
